FAERS Safety Report 24566546 (Version 1)
Quarter: 2024Q4

REPORT INFORMATION
  Report Type: Spontaneous
  Country: US (occurrence: None)
  Receive Date: 20241029
  Receipt Date: 20241029
  Transmission Date: 20250114
  Serious: No
  Sender: Public
  Company Number: None

PATIENT
  Age: 58 Year
  Sex: Male
  Weight: 111.6 kg

DRUGS (11)
  1. OSELTAMIVIR PHOSPHATE [Suspect]
     Active Substance: OSELTAMIVIR PHOSPHATE
     Indication: Influenza
     Dosage: OTHER QUANTITY : 1 CAPSULE(S);?FREQUENCY : TWICE A DAY;?
     Route: 048
     Dates: start: 20241026
  2. AMOXICILLIN [Suspect]
     Active Substance: AMOXICILLIN
  3. CHLORTHALIDONE [Concomitant]
     Active Substance: CHLORTHALIDONE
  4. olmesarten [Concomitant]
  5. TOUJEO [Concomitant]
     Active Substance: INSULIN GLARGINE
  6. METFORMIN [Concomitant]
     Active Substance: METFORMIN HYDROCHLORIDE
  7. VITAMIN D NOS [Concomitant]
     Active Substance: CHOLECALCIFEROL\ERGOCALCIFEROL
  8. c [Concomitant]
  9. TOCOPHEROL [Concomitant]
     Active Substance: TOCOPHEROL
  10. VITAMIN K [Concomitant]
     Active Substance: PHYTONADIONE
  11. MAGNESIUM [Concomitant]
     Active Substance: MAGNESIUM

REACTIONS (6)
  - Stomatitis [None]
  - Tongue coated [None]
  - Glossodynia [None]
  - Oropharyngeal pain [None]
  - Oral candidiasis [None]
  - Therapy cessation [None]

NARRATIVE: CASE EVENT DATE: 20241028
